FAERS Safety Report 5752085-8 (Version None)
Quarter: 2008Q2

REPORT INFORMATION
  Report Type: 
  Country: None (occurrence: None)
  Receive Date: 20080529
  Receipt Date: 20080529
  Transmission Date: 20081010
  Serious: Yes (Hospitalization, Other)
  Sender: FDA-Public Use
  Company Number: US-ABBOTT-07P-163-0377239-00

PATIENT
  Sex: Male
  Weight: 55 kg

DRUGS (1)
  1. E-MYCIN [Suspect]
     Indication: ACNE
     Route: 048
     Dates: start: 20060801, end: 20061231

REACTIONS (2)
  - CHOLELITHIASIS [None]
  - HEPATITIS [None]
